FAERS Safety Report 23159156 (Version 1)
Quarter: 2023Q4

REPORT INFORMATION
  Report Type: Spontaneous
  Country: US (occurrence: None)
  Receive Date: 20231107
  Receipt Date: 20231107
  Transmission Date: 20240110
  Serious: Yes (Hospitalization)
  Sender: FDA-Public Use
  Company Number: None

PATIENT
  Sex: Female

DRUGS (17)
  1. METHOTREXATE [Suspect]
     Active Substance: METHOTREXATE
     Indication: Rheumatoid arthritis
  2. HYDROCHLOROTHIAZIDE [Concomitant]
     Active Substance: HYDROCHLOROTHIAZIDE
  3. TRIAMTERENE [Concomitant]
     Active Substance: TRIAMTERENE
  4. ROBAXIN [Concomitant]
     Active Substance: METHOCARBAMOL
  5. METOPROLOL TARTRATE [Concomitant]
     Active Substance: METOPROLOL TARTRATE
  6. MORPHINE SULFATE [Concomitant]
     Active Substance: MORPHINE SULFATE
  7. OMEPRAZOLE [Concomitant]
     Active Substance: OMEPRAZOLE
  8. MIRENA [Concomitant]
     Active Substance: LEVONORGESTREL
  9. ALBUTEROL [Concomitant]
     Active Substance: ALBUTEROL
  10. DOCULASE [Concomitant]
  11. LEVOTHYROXINE SODIUM [Concomitant]
     Active Substance: LEVOTHYROXINE SODIUM
  12. METFORMIN HYDROCHLORIDE [Concomitant]
     Active Substance: METFORMIN HYDROCHLORIDE
  13. SUMATRIPTAN SUCCINATE [Concomitant]
     Active Substance: SUMATRIPTAN SUCCINATE
  14. ATORVASTATIN CALCIUM [Concomitant]
     Active Substance: ATORVASTATIN CALCIUM
  15. ORENCIA [Suspect]
     Active Substance: ABATACEPT
  16. XELJANZ [Suspect]
     Active Substance: TOFACITINIB CITRATE
  17. HUMIRA [Suspect]
     Active Substance: ADALIMUMAB

REACTIONS (9)
  - Drug ineffective [None]
  - Atrial fibrillation [None]
  - Joint arthroplasty [None]
  - Manufacturing product shipping issue [None]
  - Pain in extremity [None]
  - Erythema [None]
  - Peripheral swelling [None]
  - Movement disorder [None]
  - Immune system disorder [None]
